FAERS Safety Report 8962314 (Version 2)
Quarter: 2013Q1

REPORT INFORMATION
  Report Type: Spontaneous
  Country: GB (occurrence: None)
  Receive Date: 20121203
  Receipt Date: 20130307
  Transmission Date: 20140127
  Serious: Yes (Death)
  Sender: FDA-Public Use
  Company Number: GB-010200

PATIENT
  Age: 75 Year
  Sex: Male
  Weight: 172 kg

DRUGS (9)
  1. DEGARELIX [Suspect]
     Indication: PROSTATE CANCER
     Route: 058
     Dates: start: 20121011, end: 20121011
  2. ALLOPURINOL [Concomitant]
  3. ASPIRIN [Concomitant]
  4. FUROSEMIDE [Concomitant]
  5. LISINOPRIL [Concomitant]
  6. SIMVASTATIN [Concomitant]
  7. GLYCERYL TRINITRATE [Concomitant]
  8. PARACETAMOL [Concomitant]
  9. ATENOLOL [Concomitant]

REACTIONS (11)
  - Diarrhoea [None]
  - Vomiting [None]
  - Dyspnoea [None]
  - Lactic acidosis [None]
  - Hyperkalaemia [None]
  - Hypocalcaemia [None]
  - Lung consolidation [None]
  - General physical health deterioration [None]
  - Respiratory arrest [None]
  - Renal failure acute [None]
  - Anaemia [None]
